FAERS Safety Report 12825094 (Version 2)
Quarter: 2016Q4

REPORT INFORMATION
  Report Type: Spontaneous
  Country: JP (occurrence: JP)
  Receive Date: 20161007
  Receipt Date: 20161228
  Transmission Date: 20170207
  Serious: Yes (Death, Hospitalization)
  Sender: FDA-Public Use
  Company Number: JP-GE HEALTHCARE MEDICAL DIAGNOSTICS-MSTR-PR-1509S-0003

PATIENT
  Age: 67 Year
  Sex: Male
  Weight: 69.7 kg

DRUGS (8)
  1. METASTRON [Suspect]
     Active Substance: STRONTIUM CHLORIDE SR-89
     Indication: CANCER PAIN
     Route: 042
     Dates: start: 20150108, end: 20150108
  2. CELECOXIB. [Concomitant]
     Active Substance: CELECOXIB
  3. REBAMIPIDE [Concomitant]
     Active Substance: REBAMIPIDE
  4. FLUTAMIDE. [Concomitant]
     Active Substance: FLUTAMIDE
  5. METASTRON [Suspect]
     Active Substance: STRONTIUM CHLORIDE SR-89
     Indication: THERAPEUTIC PROCEDURE
     Dosage: DOSE NOT REPORTED
     Route: 042
     Dates: start: 20130919, end: 20130919
  6. DENOSUMAB [Concomitant]
     Active Substance: DENOSUMAB
  7. OXYCODONE [Concomitant]
     Active Substance: OXYCODONE
  8. LEUPRORELIN ACETATE [Concomitant]
     Active Substance: LEUPROLIDE ACETATE

REACTIONS (5)
  - Varicella [Not Recovered/Not Resolved]
  - Acute myeloid leukaemia [Fatal]
  - Myelodysplastic syndrome [Not Recovered/Not Resolved]
  - Multiple organ dysfunction syndrome [Fatal]
  - Sepsis [Not Recovered/Not Resolved]

NARRATIVE: CASE EVENT DATE: 2015
